FAERS Safety Report 21593420 (Version 1)
Quarter: 2022Q4

REPORT INFORMATION
  Report Type: Spontaneous
  Country: US (occurrence: None)
  Receive Date: 20221114
  Receipt Date: 20221114
  Transmission Date: 20230113
  Serious: No
  Sender: FDA-Public Use
  Company Number: None

PATIENT
  Age: 79 Year
  Sex: Male

DRUGS (1)
  1. TRELSTAR [Suspect]
     Active Substance: TRIPTORELIN PAMOATE
     Indication: Prostate cancer
     Dosage: OTHER FREQUENCY : EVERY 12 WEEKS;?
     Route: 030
     Dates: start: 20221105

REACTIONS (3)
  - Device delivery system issue [None]
  - Device malfunction [None]
  - Drug dose omission by device [None]

NARRATIVE: CASE EVENT DATE: 20221114
